FAERS Safety Report 25755949 (Version 1)
Quarter: 2025Q3

REPORT INFORMATION
  Report Type: Spontaneous
  Country: US (occurrence: US)
  Receive Date: 20250903
  Receipt Date: 20250903
  Transmission Date: 20251020
  Serious: No
  Sender: STALLERGENES
  Company Number: US-STALCOR-2025-AER-02317

PATIENT
  Age: 5 Year
  Sex: Female

DRUGS (3)
  1. PALFORZIA [Suspect]
     Active Substance: PEANUT
     Indication: Food allergy
     Dosage: REACTIVE DOSE LEVEL 2, DISPENSED ON 17-JUN-2025
     Route: 048
  2. AUGMENTIN [Concomitant]
     Active Substance: AMOXICILLIN\CLAVULANATE POTASSIUM
     Indication: Product used for unknown indication
  3. AUGMENTIN [Concomitant]
     Active Substance: AMOXICILLIN\CLAVULANATE POTASSIUM

REACTIONS (1)
  - Ear pruritus [Not Recovered/Not Resolved]

NARRATIVE: CASE EVENT DATE: 20250601
